FAERS Safety Report 14125601 (Version 1)
Quarter: 2017Q4

REPORT INFORMATION
  Report Type: Spontaneous
  Country: FR (occurrence: FR)
  Receive Date: 20171025
  Receipt Date: 20171025
  Transmission Date: 20180321
  Serious: Yes (Hospitalization)
  Sender: FDA-Public Use
  Company Number: FR-SA-2017SA204287

PATIENT
  Age: 74 Year
  Sex: Female

DRUGS (15)
  1. RIMACTAN [Suspect]
     Active Substance: RIFAMPIN
     Indication: MEDICAL DEVICE SITE INFECTION
     Route: 048
     Dates: start: 20170918, end: 20171003
  2. LOVENOX [Suspect]
     Active Substance: ENOXAPARIN SODIUM
     Indication: THROMBOSIS PROPHYLAXIS
     Route: 058
     Dates: start: 20170914, end: 20171004
  3. TARDYFERON [Concomitant]
     Active Substance: FERROUS SULFATE
     Route: 065
  4. GENTAMICIN. [Suspect]
     Active Substance: GENTAMICIN
     Indication: MEDICAL DEVICE SITE INFECTION
     Route: 042
     Dates: start: 20170913, end: 20170918
  5. LUDIOMIL [Concomitant]
     Active Substance: MAPROTILINE HYDROCHLORIDE
     Route: 065
  6. MOVICOL [Concomitant]
     Active Substance: POLYETHYLENE GLYCOL 3350\POTASSIUM CHLORIDE\SODIUM BICARBONATE\SODIUM CHLORIDE
     Dosage: DOSE: 1 SACHET IN MORNING
     Route: 065
  7. OXAZEPAM. [Concomitant]
     Active Substance: OXAZEPAM
     Route: 065
  8. PARACETAMOL [Concomitant]
     Active Substance: ACETAMINOPHEN
     Route: 065
  9. CUBICIN [Suspect]
     Active Substance: DAPTOMYCIN
     Indication: MEDICAL DEVICE SITE INFECTION
     Route: 042
     Dates: start: 20170914, end: 20170926
  10. OXYCONTIN [Suspect]
     Active Substance: OXYCODONE HYDROCHLORIDE
     Indication: PAIN
     Route: 048
     Dates: start: 20170914, end: 20171004
  11. LIPANTHYL [Concomitant]
     Active Substance: FENOFIBRATE
     Route: 065
  12. AZACTAM [Suspect]
     Active Substance: AZTREONAM
     Indication: MEDICAL DEVICE SITE INFECTION
     Route: 042
     Dates: start: 20170914, end: 20170918
  13. SERESTA [Suspect]
     Active Substance: OXAZEPAM
     Indication: DEPRESSION
     Route: 048
     Dates: start: 20170914, end: 20171002
  14. FOLIC ACID. [Concomitant]
     Active Substance: FOLIC ACID
     Route: 065
  15. METFORMIN [Concomitant]
     Active Substance: METFORMIN HYDROCHLORIDE
     Route: 065

REACTIONS (3)
  - Rash [Not Recovered/Not Resolved]
  - Rhabdomyolysis [Recovered/Resolved]
  - Eosinophilia [Not Recovered/Not Resolved]

NARRATIVE: CASE EVENT DATE: 20170919
